FAERS Safety Report 6731214-3 (Version None)
Quarter: 2010Q2

REPORT INFORMATION
  Report Type: 
  Country: None (occurrence: None)
  Receive Date: 20100518
  Receipt Date: 20100512
  Transmission Date: 20101027
  Serious: Yes (Death)
  Sender: FDA-Public Use
  Company Number: US-GENENTECH-300641

PATIENT
  Sex: Male
  Weight: 108.2 kg

DRUGS (16)
  1. OMALIZUMAB [Suspect]
     Indication: ASTHMA
     Dosage: 300 MG, Q4W
     Route: 058
     Dates: start: 20040122, end: 20100131
  2. LEVALBUTEROL HCL [Concomitant]
     Indication: DYSPNOEA
     Dosage: UNK
     Dates: start: 20091014, end: 20100131
  3. FLUTICASONE PROPIONATE [Concomitant]
     Indication: HYPERSENSITIVITY
     Dosage: UNK
     Dates: start: 20091229, end: 20100131
  4. HERPES ZOSTER VACCINE NOS [Concomitant]
     Indication: HERPES ZOSTER
  5. ROSUVASTATIN [Concomitant]
     Indication: BLOOD CHOLESTEROL
     Dosage: UNK
     Dates: start: 20091222, end: 20100131
  6. HYDROCHLOROTHIAZIDE [Concomitant]
     Indication: BLOOD PRESSURE INCREASED
     Dosage: UNK
     Dates: start: 20091216, end: 20100131
  7. NYSTATIN [Concomitant]
     Indication: FUNGAL INFECTION
     Dosage: UNK
     Dates: start: 20091020, end: 20100131
  8. PREDNISONE [Concomitant]
     Indication: DRUG USE FOR UNKNOWN INDICATION
     Dosage: UNK
  9. EPIPEN [Concomitant]
     Indication: DRUG USE FOR UNKNOWN INDICATION
     Dosage: UNK
     Dates: start: 20090917, end: 20100131
  10. SILVER SULFADIAZINE [Concomitant]
     Indication: WOUND
     Dosage: UNK
     Dates: start: 20090910, end: 20100131
  11. STOMAHESIVE POWDER [Concomitant]
     Indication: DRUG USE FOR UNKNOWN INDICATION
     Dosage: UNK
     Dates: start: 20090817, end: 20100131
  12. PRAVASTATIN [Concomitant]
     Indication: BLOOD CHOLESTEROL INCREASED
     Dosage: UNK
     Dates: start: 20081124, end: 20090727
  13. LORATADINE [Concomitant]
     Indication: HYPERSENSITIVITY
     Dosage: UNK
     Dates: start: 20090727, end: 20100131
  14. ALBUTEROL [Concomitant]
     Indication: ASTHMA
     Dosage: UNK
     Dates: start: 20090611, end: 20090727
  15. SODIUM FLUORIDE [Concomitant]
     Indication: DRUG USE FOR UNKNOWN INDICATION
     Dosage: UNK
     Dates: start: 20090608, end: 20090705
  16. CHLORHEXIDINE GLUCONATE [Concomitant]
     Indication: DRUG USE FOR UNKNOWN INDICATION
     Dosage: UNK
     Dates: start: 20090608, end: 20090705

REACTIONS (1)
  - DEATH [None]
